FAERS Safety Report 9840601 (Version 1)
Quarter: 2013Q4

REPORT INFORMATION
  Report Type: Spontaneous
  Country: US (occurrence: None)
  Receive Date: 20131211
  Receipt Date: 20131211
  Transmission Date: 20140711
  Serious: Yes (Hospitalization)
  Sender: FDA-Public Use
  Company Number: SPV1-2009-01719

PATIENT
  Age: 17 Year
  Sex: Male

DRUGS (2)
  1. ELAPRASE [Suspect]
     Indication: MUCOPOLYSACCHARIDOSIS II
     Route: 041
     Dates: start: 20060831
  2. SOLU-MEDROL (METHYLPREDNISOLONE SODIUM SUCCINATE) [Suspect]
     Indication: PREMEDICATION
     Dates: start: 20060831

REACTIONS (1)
  - Hypersensitivity [None]
